FAERS Safety Report 4440474-3 (Version None)
Quarter: 2004Q3

REPORT INFORMATION
  Report Type: 
  Country: None (occurrence: None)
  Receive Date: 20040903
  Receipt Date: 20040827
  Transmission Date: 20050211
  Serious: Yes (Other)
  Sender: FDA-Public Use
  Company Number: PHEH2004US09344

PATIENT
  Age: 57 Year
  Sex: Female

DRUGS (3)
  1. CLOZARIL [Suspect]
     Indication: SCHIZOPHRENIA
     Dosage: 575 MG, QHS
     Route: 048
     Dates: start: 19950101
  2. CHEMOTHERAPEUTICS,OTHER [Suspect]
  3. RADIATION THERAPY [Suspect]

REACTIONS (2)
  - LEUKOPENIA [None]
  - SMALL CELL LUNG CANCER STAGE UNSPECIFIED [None]
